FAERS Safety Report 4391764-4 (Version None)
Quarter: 2004Q3

REPORT INFORMATION
  Report Type: 
  Country: None (occurrence: None)
  Receive Date: 20040701
  Receipt Date: 20040621
  Transmission Date: 20050211
  Serious: Yes (Hospitalization)
  Sender: FDA-Public Use
  Company Number: 2004042252

PATIENT
  Age: 64 Year
  Sex: Male

DRUGS (4)
  1. VIAGRA [Suspect]
     Indication: ERECTILE DYSFUNCTION
  2. ESOMEPRAZOLE (ESOMEPRAZOLE) [Concomitant]
  3. CLONIDINE [Concomitant]
  4. BISELECT (BISOPROLOL FUMARATE, HYDROCHLOROTHIAZIDE) [Concomitant]

REACTIONS (3)
  - ANEURYSM [None]
  - BLOOD PRESSURE SYSTOLIC INCREASED [None]
  - ERYTHEMA [None]
